FAERS Safety Report 21412062 (Version 1)
Quarter: 2022Q4

REPORT INFORMATION
  Report Type: Spontaneous
  Country: US (occurrence: US)
  Receive Date: 20221005
  Receipt Date: 20221005
  Transmission Date: 20230112
  Serious: No
  Sender: FDA-Public Use
  Company Number: US-APOTEX-2022AP011398

PATIENT
  Age: 57 Year
  Sex: Female

DRUGS (1)
  1. FLUTICASONE PROPIONATE [Suspect]
     Active Substance: FLUTICASONE PROPIONATE
     Indication: Allergy to animal
     Dosage: 4 DOSAGE FORM, Q.AM
     Route: 045
     Dates: start: 202201, end: 20220602

REACTIONS (12)
  - Muscle spasms [Recovering/Resolving]
  - Night sweats [Recovering/Resolving]
  - Bowel movement irregularity [Recovering/Resolving]
  - Faeces hard [Recovering/Resolving]
  - Condition aggravated [Recovering/Resolving]
  - Heart rate increased [Recovering/Resolving]
  - Tremor [Recovering/Resolving]
  - Disturbance in attention [Recovering/Resolving]
  - Dizziness [Recovering/Resolving]
  - Headache [Recovering/Resolving]
  - Nausea [Recovering/Resolving]
  - Vision blurred [Recovering/Resolving]

NARRATIVE: CASE EVENT DATE: 20220301
